FAERS Safety Report 26146232 (Version 1)
Quarter: 2025Q4

REPORT INFORMATION
  Report Type: Spontaneous
  Country: EU (occurrence: EU)
  Receive Date: 20251211
  Receipt Date: 20251211
  Transmission Date: 20260119
  Serious: Yes (Hospitalization)
  Sender: NOVARTIS
  Company Number: None

PATIENT
  Age: 81 Year
  Sex: Male

DRUGS (3)
  1. CYCLOSPORINE [Interacting]
     Active Substance: CYCLOSPORINE
     Indication: Solid organ transplant
     Dosage: 100 MG, Q12H
     Route: 048
     Dates: start: 202412
  2. MYFORTIC [Suspect]
     Active Substance: MYCOPHENOLATE SODIUM
     Indication: Solid organ transplant
     Dosage: 360 MG, Q12H
     Route: 048
     Dates: start: 2021, end: 20240910
  3. PREDNISONE [Suspect]
     Active Substance: PREDNISONE
     Indication: Solid organ transplant
     Dosage: 5 MG, Q24H
     Route: 048
     Dates: start: 2021

REACTIONS (1)
  - Urinary tract infection bacterial [Unknown]

NARRATIVE: CASE EVENT DATE: 20250910
